FAERS Safety Report 15114534 (Version 2)
Quarter: 2018Q3

REPORT INFORMATION
  Report Type: Report from Study
  Country: US (occurrence: US)
  Receive Date: 20180706
  Receipt Date: 20180712
  Transmission Date: 20181010
  Serious: Yes (Hospitalization)
  Sender: FDA-Public Use
  Company Number: US-GILEAD-2018-0347680

PATIENT
  Age: 77 Year
  Sex: Female
  Weight: 68.48 kg

DRUGS (1)
  1. AMBRISENTAN [Suspect]
     Active Substance: AMBRISENTAN
     Indication: PULMONARY ARTERIAL HYPERTENSION
     Dosage: 5 MG, QD
     Route: 065
     Dates: start: 20180516

REACTIONS (3)
  - Unevaluable event [Unknown]
  - Swelling [Unknown]
  - Malaise [Unknown]

NARRATIVE: CASE EVENT DATE: 20180525
